FAERS Safety Report 9854058 (Version 1)
Quarter: 2014Q1

REPORT INFORMATION
  Report Type: Spontaneous
  Country: US (occurrence: US)
  Receive Date: 20140129
  Receipt Date: 20140129
  Transmission Date: 20141002
  Serious: Yes (Hospitalization)
  Sender: FDA-Public Use
  Company Number: US-PFIZER INC-2014026795

PATIENT
  Age: 28 Year
  Sex: Male
  Weight: 83.9 kg

DRUGS (1)
  1. EFFEXOR XR [Suspect]
     Indication: DEPRESSION
     Dosage: 75 MG, 1X/DAY
     Dates: end: 201306

REACTIONS (5)
  - Drug dispensing error [Unknown]
  - Serotonin syndrome [Recovering/Resolving]
  - Mydriasis [Unknown]
  - Blood electrolytes decreased [Unknown]
  - Blood glucose increased [Unknown]
